FAERS Safety Report 15495247 (Version 1)
Quarter: 2018Q4

REPORT INFORMATION
  Report Type: Spontaneous
  Country: US (occurrence: US)
  Receive Date: 20181012
  Receipt Date: 20181012
  Transmission Date: 20190205
  Serious: No
  Sender: FDA-Public Use
  Company Number: None

PATIENT
  Age: 33 Year
  Sex: Female
  Weight: 56.25 kg

DRUGS (5)
  1. CLINDAMYCIN HCL 300MG [Suspect]
     Active Substance: CLINDAMYCIN HYDROCHLORIDE
     Indication: SINUSITIS
     Dosage: ?          QUANTITY:1 CAPSULE(S);?
     Route: 048
     Dates: start: 20181004, end: 20181011
  2. IRON SUPPLEMENT [Concomitant]
     Active Substance: IRON
  3. FLONASE [Concomitant]
     Active Substance: FLUTICASONE PROPIONATE
  4. SERTRALINE HCL [Concomitant]
     Active Substance: SERTRALINE HYDROCHLORIDE
  5. CLARITIN [Concomitant]
     Active Substance: LORATADINE

REACTIONS (6)
  - Headache [None]
  - Mood swings [None]
  - Hyperhidrosis [None]
  - Palpitations [None]
  - Irritability [None]
  - Anxiety [None]
